FAERS Safety Report 4386556-6 (Version None)
Quarter: 2004Q2

REPORT INFORMATION
  Report Type: 
  Country: None (occurrence: None)
  Receive Date: 20040623
  Receipt Date: 20040610
  Transmission Date: 20050107
  Serious: Yes (Hospitalization, Other)
  Sender: FDA-Public Use
  Company Number: 2004038620

PATIENT
  Age: 72 Year
  Sex: Male

DRUGS (6)
  1. ATARAX [Suspect]
     Indication: ILL-DEFINED DISORDER
     Dosage: 100 MG, ORAL
     Route: 048
  2. ALIMEMAZINE TARTRATE (ALIMEMAZINE TARTRATE) [Concomitant]
  3. DIAZEPAM [Concomitant]
  4. THIAMINE HCL [Concomitant]
  5. PYRIDOXINE HCL [Concomitant]
  6. FOLIC ACID [Concomitant]

REACTIONS (4)
  - CAROTID ARTERY STENOSIS [None]
  - FALL [None]
  - SUBCLAVIAN ARTERY STENOSIS [None]
  - SUPRAVENTRICULAR EXTRASYSTOLES [None]
